FAERS Safety Report 7764620-9 (Version None)
Quarter: 2011Q3

REPORT INFORMATION
  Report Type: 
  Country: None (occurrence: None)
  Receive Date: 20110921
  Receipt Date: 20110912
  Transmission Date: 20111222
  Serious: Yes (Hospitalization)
  Sender: FDA-Public Use
  Company Number: PHHY2011FR67633

PATIENT
  Sex: Male

DRUGS (11)
  1. SITAGLIPTIN PHOSPHATE [Concomitant]
  2. METOCLOPRAMIDE ^GALLIER^ [Concomitant]
  3. GLICLAZIDE [Concomitant]
     Dosage: 30 MG, UNK
  4. LOSARTAN POTASSIUM [Concomitant]
     Dosage: 50 MG, UNK
  5. TASIGNA [Suspect]
     Dosage: 200 MG, QID
     Dates: start: 20110712, end: 20110726
  6. TASIGNA [Suspect]
     Indication: CHRONIC MYELOID LEUKAEMIA
     Dosage: 400 MG, BID
     Route: 048
  7. DIACEREIN [Concomitant]
  8. MOTILIUM ^ESTEVE^ [Concomitant]
  9. ASPIRIN [Concomitant]
     Dosage: 75 MG, UNK
  10. METFORMIN HCL [Concomitant]
     Dosage: 1 G, UNK
  11. TAMSULOSIN HCL [Concomitant]

REACTIONS (6)
  - NAUSEA [None]
  - VOMITING [None]
  - ABDOMINAL PAIN [None]
  - CONSTIPATION [None]
  - SUBILEUS [None]
  - FAECALOMA [None]
